FAERS Safety Report 18647514 (Version 1)
Quarter: 2020Q4

REPORT INFORMATION
  Report Type: Spontaneous
  Country: US (occurrence: US)
  Receive Date: 20201222
  Receipt Date: 20201222
  Transmission Date: 20210114
  Serious: No
  Sender: FDA-Public Use
  Company Number: US-RECKITT BENCKISER HEALTHCARE INT LIMITED-RB-80216-2020

PATIENT
  Age: 10 Year
  Sex: Male

DRUGS (3)
  1. DELSYM [Suspect]
     Active Substance: DEXTROMETHORPHAN
     Indication: RHINORRHOEA
  2. DELSYM [Suspect]
     Active Substance: DEXTROMETHORPHAN
     Indication: COUGH
     Dosage: 5 MILLILITER, SINGLE
     Route: 048
     Dates: start: 20191201
  3. DELSYM [Suspect]
     Active Substance: DEXTROMETHORPHAN
     Indication: PYREXIA

REACTIONS (1)
  - Drug ineffective [Recovering/Resolving]
